FAERS Safety Report 8263270-8 (Version None)
Quarter: 2012Q2

REPORT INFORMATION
  Report Type: 
  Country: None (occurrence: None)
  Receive Date: 20120405
  Receipt Date: 20120403
  Transmission Date: 20120825
  Serious: Yes (Other)
  Sender: FDA-Public Use
  Company Number: US-PFIZER INC-2012084523

PATIENT
  Sex: Female
  Weight: 57 kg

DRUGS (5)
  1. MULTI-VITAMINS [Concomitant]
     Dosage: UNK
  2. HYDROXYZINE [Concomitant]
     Dosage: 25 MG, 3X/DAY
  3. CHANTIX [Suspect]
     Indication: SMOKING CESSATION THERAPY
     Dosage: 0.5 MG, 1X/DAY
     Route: 048
     Dates: start: 20080101, end: 20080101
  4. ALBUTEROL [Concomitant]
     Dosage: 2.5 MG, UNK
  5. SERTRALINE [Concomitant]
     Dosage: 100 MG, 2X/DAY

REACTIONS (3)
  - INTESTINAL PERFORATION [None]
  - HERNIA [None]
  - ASTHMA [None]
